FAERS Safety Report 7388170-7 (Version None)
Quarter: 2011Q1

REPORT INFORMATION
  Report Type: 
  Country: None (occurrence: None)
  Receive Date: 20110324
  Receipt Date: 20110310
  Transmission Date: 20110831
  Serious: Yes (Other)
  Sender: FDA-Public Use
  Company Number: 029366

PATIENT
  Sex: Female

DRUGS (1)
  1. KEPPRA [Suspect]
     Indication: NERVOUS SYSTEM DISORDER
     Dosage: (1000 MG ORAL) ; (1500 MG) ; (1250 MG)
     Route: 048
     Dates: start: 20070101

REACTIONS (5)
  - DRUG INEFFECTIVE [None]
  - MENTAL DISORDER [None]
  - CONVULSION [None]
  - WEIGHT INCREASED [None]
  - PRODUCT QUALITY ISSUE [None]
